FAERS Safety Report 9338989 (Version 1)
Quarter: 2013Q2

REPORT INFORMATION
  Report Type: Report from Study
  Country: MX (occurrence: MX)
  Receive Date: 20130610
  Receipt Date: 20130610
  Transmission Date: 20140414
  Serious: Yes (Death, Hospitalization, Other)
  Sender: FDA-Public Use
  Company Number: MX-SANOFI-AVENTIS-2013SA056190

PATIENT
  Age: 85 Year
  Sex: Female
  Weight: 70 kg

DRUGS (1)
  1. AMARYL [Suspect]
     Indication: TYPE 2 DIABETES MELLITUS
     Route: 048
     Dates: start: 2010

REACTIONS (3)
  - Death [Fatal]
  - Brain stem stroke [Unknown]
  - Malaise [Unknown]
